FAERS Safety Report 6741874-9 (Version None)
Quarter: 2010Q2

REPORT INFORMATION
  Report Type: 
  Country: None (occurrence: None)
  Receive Date: 20100526
  Receipt Date: 20100517
  Transmission Date: 20101027
  Serious: Yes (Hospitalization)
  Sender: FDA-Public Use
  Company Number: A0788327A

PATIENT
  Age: 61 Year
  Sex: Male

DRUGS (1)
  1. AVANDIA [Suspect]
     Route: 048
     Dates: start: 20000423, end: 20040304

REACTIONS (4)
  - ABASIA [None]
  - CORONARY ARTERIAL STENT INSERTION [None]
  - DYSPNOEA [None]
  - MOBILITY DECREASED [None]
